FAERS Safety Report 10098546 (Version 1)
Quarter: 2014Q2

REPORT INFORMATION
  Report Type: Spontaneous
  Country: US (occurrence: US)
  Receive Date: 20140423
  Receipt Date: 20140423
  Transmission Date: 20141212
  Serious: Yes (Hospitalization)
  Sender: FDA-Public Use
  Company Number: US-BAYER-2014-057905

PATIENT
  Age: 18 Year
  Sex: Female
  Weight: 57 kg

DRUGS (4)
  1. YAZ [Suspect]
  2. YASMIN [Suspect]
  3. FLONASE [Concomitant]
  4. AMOXICILLIN [Concomitant]
     Indication: SINUSITIS
     Dosage: 875 MG, UNK

REACTIONS (1)
  - Transient ischaemic attack [None]
